FAERS Safety Report 5657515-8 (Version None)
Quarter: 2008Q1

REPORT INFORMATION
  Report Type: 
  Country: None (occurrence: None)
  Receive Date: 20080307
  Receipt Date: 20080307
  Transmission Date: 20080703
  Serious: Yes (Death)
  Sender: FDA-Public Use
  Company Number: None

PATIENT
  Age: 29 Year
  Sex: Male
  Weight: 64.4108 kg

DRUGS (10)
  1. ERBITUX [Suspect]
     Indication: COLON CANCER METASTATIC
     Dosage: 680 MG ONCE IV DRIP
     Route: 041
     Dates: start: 20071208, end: 20071208
  2. ERBITUX [Suspect]
  3. ACETAMINOPHEN [Concomitant]
  4. ODANSETRON [Concomitant]
  5. PROCHLORPERAZINE [Concomitant]
  6. IRITONECAN [Concomitant]
  7. MORPHINE [Concomitant]
  8. METRONIDAZOLE HCL [Concomitant]
  9. AZTREONAM [Concomitant]
  10. SIMETHICONE [Concomitant]

REACTIONS (6)
  - HYPOTENSION [None]
  - PALPITATIONS [None]
  - PULSE ABSENT [None]
  - RESUSCITATION [None]
  - TACHYCARDIA [None]
  - UNRESPONSIVE TO STIMULI [None]
